FAERS Safety Report 9774791 (Version 2)
Quarter: 2013Q4

REPORT INFORMATION
  Report Type: Spontaneous
  Country: US (occurrence: US)
  Receive Date: 20131220
  Receipt Date: 20131220
  Transmission Date: 20140711
  Serious: No
  Sender: FDA-Public Use
  Company Number: US-GALDERMA-US13000708

PATIENT
  Sex: Female

DRUGS (2)
  1. METROGEL [Suspect]
     Indication: ROSACEA
     Route: 061
     Dates: start: 1994, end: 2000
  2. FINACEA [Concomitant]
     Indication: ROSACEA
     Dosage: 15%
     Route: 061

REACTIONS (1)
  - Drug ineffective [Unknown]
